FAERS Safety Report 5513335-6 (Version None)
Quarter: 2007Q4

REPORT INFORMATION
  Report Type: 
  Country: None (occurrence: None)
  Receive Date: 20071112
  Receipt Date: 20071031
  Transmission Date: 20080405
  Serious: Yes (Hospitalization)
  Sender: FDA-Public Use
  Company Number: JP-PFIZER INC-2007092404

PATIENT
  Sex: Female

DRUGS (3)
  1. NORVASC [Suspect]
     Route: 048
  2. FOSAMAX [Suspect]
     Dosage: TEXT:35 MG, ONCE WEEK
     Route: 048
  3. CEFMETAZOLE SODIUM [Suspect]
     Route: 042
     Dates: start: 20071006, end: 20071010

REACTIONS (2)
  - APPENDICITIS [None]
  - ERYTHEMA [None]
